FAERS Safety Report 7693254-X (Version None)
Quarter: 2011Q3

REPORT INFORMATION
  Report Type: 
  Country: None (occurrence: None)
  Receive Date: 20110819
  Receipt Date: 20110804
  Transmission Date: 20111222
  Serious: Yes (Disabling, Other)
  Sender: FDA-Public Use
  Company Number: PHHY2011JP31886

PATIENT
  Sex: Male
  Weight: 67 kg

DRUGS (12)
  1. NEORAL [Suspect]
     Indication: APLASTIC ANAEMIA
     Dosage: 150 MG, DAILY
     Route: 048
     Dates: start: 20110124
  2. PRIMOBOLAN-DEPOT INJ [Concomitant]
     Indication: APLASTIC ANAEMIA
     Dosage: 10 MG, UNK
     Route: 048
     Dates: start: 20110412
  3. SULFAMETHOXAZOLE [Concomitant]
     Dosage: 1 DF, UNK
     Route: 048
     Dates: start: 20110124
  4. MAGMITT [Concomitant]
     Dosage: 1500 MG, UNK
     Route: 048
     Dates: start: 20110124
  5. ITRACONAZOLE [Concomitant]
     Dosage: 100 MG, UNK
     Route: 048
     Dates: start: 20110124
  6. EXJADE [Suspect]
     Indication: IRON OVERLOAD
     Dosage: 500 MG
     Route: 048
     Dates: start: 20110222, end: 20110301
  7. FAMOTIDINE [Concomitant]
     Dosage: 20 MG, UNK
     Route: 048
     Dates: start: 20110124
  8. MAXIPIME [Concomitant]
     Dosage: 4 G, UNK
     Dates: start: 20110308, end: 20110311
  9. GRAN [Concomitant]
     Dosage: 75 UG, UNK
     Dates: start: 20110308, end: 20110318
  10. MEROPENEM [Concomitant]
     Dosage: 3 G, UNK
     Dates: start: 20110311, end: 20110318
  11. EXJADE [Suspect]
     Dosage: 1000 MG
     Dates: start: 20110302, end: 20110328
  12. LEVOFLOXACIN [Concomitant]
     Dosage: 250 MG, UNK
     Route: 048
     Dates: start: 20110124

REACTIONS (6)
  - DECREASED APPETITE [None]
  - HEPATITIS B ANTIBODY POSITIVE [None]
  - HEPATIC FUNCTION ABNORMAL [None]
  - GENERALISED OEDEMA [None]
  - RENAL IMPAIRMENT [None]
  - ASCITES [None]
